FAERS Safety Report 8089554-4 (Version None)
Quarter: 2012Q1

REPORT INFORMATION
  Report Type: 
  Country: None (occurrence: None)
  Receive Date: 20120128
  Receipt Date: 20110617
  Transmission Date: 20120608
  Serious: No
  Sender: FDA-Public Use
  Company Number: US-ABBOTT-11P-163-0733425-00

PATIENT
  Sex: Female
  Weight: 95.34 kg

DRUGS (3)
  1. HUMIRA [Suspect]
     Indication: PSORIATIC ARTHROPATHY
     Dates: start: 20110512
  2. HUMIRA [Suspect]
     Indication: SJOGREN'S SYNDROME
  3. LODINE [Concomitant]
     Indication: ARTHRALGIA

REACTIONS (4)
  - HEADACHE [None]
  - PAIN [None]
  - URINARY TRACT INFECTION [None]
  - PYREXIA [None]
